FAERS Safety Report 18140516 (Version 1)
Quarter: 2020Q3

REPORT INFORMATION
  Report Type: Spontaneous
  Country: CN (occurrence: CN)
  Receive Date: 20200812
  Receipt Date: 20200812
  Transmission Date: 20201103
  Serious: Yes (Hospitalization, Other)
  Sender: FDA-Public Use
  Company Number: CN-PFIZER INC-2020306290

PATIENT
  Age: 78 Year
  Sex: Female
  Weight: 61 kg

DRUGS (2)
  1. MYONAL [EPERISONE HYDROCHLORIDE] [Suspect]
     Active Substance: EPERISONE HYDROCHLORIDE
     Indication: RELAXATION THERAPY
     Dosage: 50 MG, 3X/DAY
     Route: 048
     Dates: start: 20200803, end: 20200803
  2. CELECOXIB. [Suspect]
     Active Substance: CELECOXIB
     Indication: ANALGESIC THERAPY
     Dosage: 0.2 G, 2X/DAY
     Route: 048
     Dates: start: 20200803, end: 20200803

REACTIONS (7)
  - Dizziness [Recovering/Resolving]
  - Haematemesis [Recovering/Resolving]
  - Vomiting [Recovering/Resolving]
  - Gastrointestinal haemorrhage [Unknown]
  - Asthenia [Recovering/Resolving]
  - Varices oesophageal [Unknown]
  - Chronic gastritis [Recovering/Resolving]

NARRATIVE: CASE EVENT DATE: 20200803
